FAERS Safety Report 9246578 (Version 1)
Quarter: 2013Q2

REPORT INFORMATION
  Report Type: Spontaneous
  Country: US (occurrence: US)
  Receive Date: 20130422
  Receipt Date: 20130422
  Transmission Date: 20140414
  Serious: No
  Sender: FDA-Public Use
  Company Number: US-009507513-1304USA007232

PATIENT
  Sex: Female

DRUGS (3)
  1. ZETIA [Suspect]
     Indication: BLOOD CHOLESTEROL INCREASED
     Dosage: 10 MG, QD
     Route: 048
     Dates: start: 2013
  2. ZETIA [Suspect]
     Dosage: 10 MG, QOD
     Route: 048
     Dates: start: 2013
  3. CRESTOR [Concomitant]
     Dosage: 1 DF, QD

REACTIONS (1)
  - Myalgia [Recovered/Resolved]
